FAERS Safety Report 6729068-4 (Version None)
Quarter: 2010Q2

REPORT INFORMATION
  Report Type: 
  Country: None (occurrence: None)
  Receive Date: 20100517
  Receipt Date: 20100324
  Transmission Date: 20101027
  Serious: No
  Sender: FDA-Public Use
  Company Number: US-ABBOTT-10P-163-0634312-00

PATIENT
  Sex: Female
  Weight: 98.518 kg

DRUGS (2)
  1. SIMCOR [Suspect]
     Indication: BLOOD CHOLESTEROL INCREASED
     Dosage: 500/20MG
     Dates: start: 20090801, end: 20091001
  2. SIMCOR [Suspect]
     Dosage: 500/20MG

REACTIONS (3)
  - ABNORMAL DREAMS [None]
  - BURNING SENSATION [None]
  - FLUSHING [None]
